FAERS Safety Report 6816304-9 (Version None)
Quarter: 2010Q3

REPORT INFORMATION
  Report Type: 
  Country: None (occurrence: None)
  Receive Date: 20100705
  Receipt Date: 20100621
  Transmission Date: 20110219
  Serious: Yes (Other)
  Sender: FDA-Public Use
  Company Number: PHHY2010US37490

PATIENT
  Sex: Female

DRUGS (8)
  1. DIOVAN [Suspect]
     Dosage: 80 MG, BID
     Route: 048
  2. DIOVAN [Suspect]
     Dosage: 320 MG, UNK
     Route: 048
  3. TOPROL-XL [Suspect]
  4. NORVASC [Suspect]
  5. ACE INHIBITOR NOS [Suspect]
  6. CALCIUM CHANNEL BLOCKERS [Suspect]
  7. BYSTOLIC [Concomitant]
  8. SINEMET [Concomitant]
     Indication: PARKINSON'S DISEASE

REACTIONS (18)
  - ABDOMINAL PAIN UPPER [None]
  - ASTHENIA [None]
  - AUTONOMIC NERVOUS SYSTEM IMBALANCE [None]
  - BLOOD PRESSURE INADEQUATELY CONTROLLED [None]
  - BLOOD PRESSURE INCREASED [None]
  - DIZZINESS [None]
  - FATIGUE [None]
  - FEELING ABNORMAL [None]
  - HEADACHE [None]
  - HYPOTENSION [None]
  - INFLUENZA [None]
  - LABILE BLOOD PRESSURE [None]
  - MUSCLE ATROPHY [None]
  - MYOCARDITIS [None]
  - PARAESTHESIA [None]
  - PARKINSON'S DISEASE [None]
  - PRURITUS [None]
  - TREMOR [None]
